FAERS Safety Report 8498485-7 (Version None)
Quarter: 2012Q3

REPORT INFORMATION
  Report Type: 
  Country: None (occurrence: None)
  Receive Date: 20120709
  Receipt Date: 20120625
  Transmission Date: 20120928
  Serious: No
  Sender: FDA-Public Use
  Company Number: US-AMGEN-USASP2012039222

PATIENT
  Age: 67 Year
  Sex: Male

DRUGS (18)
  1. ENBREL [Suspect]
     Indication: PSORIATIC ARTHROPATHY
     Dosage: 50 MG, QWK
     Dates: start: 20110601
  2. LANSOPRAZOLE [Concomitant]
     Dosage: 1 MG, UNK
  3. VITAMIN C                          /00008001/ [Concomitant]
     Dosage: 1 MG, UNK
  4. VITAMIN D [Concomitant]
     Dosage: 1 UNK, UNK
  5. FISH OIL [Concomitant]
     Dosage: 1 MG, UNK
  6. COENZYME Q10 [Concomitant]
     Dosage: 3 MG, UNK
  7. CRESTOR [Concomitant]
     Dosage: 1 MG, UNK
  8. SINGULAIR [Concomitant]
     Dosage: 1 MG, UNK
  9. TRAMADOL HCL [Concomitant]
     Dosage: 3 MG, UNK
  10. FOLIC ACID [Concomitant]
     Dosage: 2 MUG, UNK
  11. METHOTREXATE [Concomitant]
     Dosage: 3 MG, UNK
  12. ANDROGEL [Concomitant]
     Dosage: UNK
  13. GLUCOSAMINE [Concomitant]
     Dosage: 2 MG, UNK
  14. FERROUS SULFATE TAB [Concomitant]
     Dosage: 3 MG, UNK
  15. LISINOPRIL [Concomitant]
     Dosage: 1 MG, UNK
  16. FLOMAX [Concomitant]
     Dosage: 1 MG, UNK
  17. ASPIRIN [Concomitant]
     Dosage: 2 MG, UNK
  18. ASPIRIN [Concomitant]

REACTIONS (3)
  - SWELLING [None]
  - INJECTION SITE SWELLING [None]
  - INJECTION SITE ERYTHEMA [None]
